FAERS Safety Report 11732357 (Version 1)
Quarter: 2015Q4

REPORT INFORMATION
  Report Type: Spontaneous
  Country: US (occurrence: US)
  Receive Date: 20151110
  Receipt Date: 20151110
  Transmission Date: 20160304
  Serious: No
  Sender: FDA-Public Use
  Company Number: US-ELI_LILLY_AND_COMPANY-US201204005057

PATIENT
  Age: 56 Year
  Sex: Female

DRUGS (1)
  1. FORTEO [Suspect]
     Active Substance: TERIPARATIDE
     Indication: OSTEOPOROSIS
     Dosage: UNK, QD
     Dates: start: 201108

REACTIONS (7)
  - Eating disorder [Unknown]
  - Oral pain [Unknown]
  - Malaise [Unknown]
  - Nausea [Unknown]
  - Compression fracture [Unknown]
  - Back pain [Unknown]
  - Gingival pain [Unknown]
